FAERS Safety Report 24002902 (Version 1)
Quarter: 2024Q2

REPORT INFORMATION
  Report Type: Spontaneous
  Country: US (occurrence: US)
  Receive Date: 20240624
  Receipt Date: 20240624
  Transmission Date: 20240716
  Serious: No
  Sender: FDA-Public Use
  Company Number: US-Suven-000022

PATIENT
  Sex: Female

DRUGS (1)
  1. MALATHION [Suspect]
     Active Substance: MALATHION
     Indication: Mite allergy
     Dosage: LOTION; STRENGTH: 0.5%
     Route: 061

REACTIONS (2)
  - Expired product administered [Unknown]
  - Off label use [Unknown]
